FAERS Safety Report 18162123 (Version 1)
Quarter: 2020Q3

REPORT INFORMATION
  Report Type: Spontaneous
  Country: US (occurrence: US)
  Receive Date: 20200818
  Receipt Date: 20200818
  Transmission Date: 20201103
  Serious: Yes (Disabling)
  Sender: FDA-Public Use
  Company Number: None

PATIENT
  Age: 41 Year
  Sex: Female
  Weight: 74.25 kg

DRUGS (2)
  1. MONTELUKAST [Suspect]
     Active Substance: MONTELUKAST SODIUM
     Indication: PRODUCTIVE COUGH
     Dosage: ?          QUANTITY:1 TABLET(S);?
     Route: 048
     Dates: start: 20200723, end: 20200816
  2. ADDERALL [Concomitant]
     Active Substance: AMPHETAMINE ASPARTATE\AMPHETAMINE SULFATE\DEXTROAMPHETAMINE SACCHARATE\DEXTROAMPHETAMINE SULFATE

REACTIONS (18)
  - Restlessness [None]
  - Anxiety [None]
  - Memory impairment [None]
  - Mental disorder [None]
  - Breath holding [None]
  - Disorientation [None]
  - Panic disorder [None]
  - Depression [None]
  - Stress [None]
  - Insomnia [None]
  - Paranoia [None]
  - Disturbance in attention [None]
  - Abnormal dreams [None]
  - Sleep terror [None]
  - Eczema [None]
  - Suicidal ideation [None]
  - Affective disorder [None]
  - Hallucinations, mixed [None]

NARRATIVE: CASE EVENT DATE: 20200816
